FAERS Safety Report 24861673 (Version 1)
Quarter: 2025Q1

REPORT INFORMATION
  Report Type: Spontaneous
  Country: CL (occurrence: None)
  Receive Date: 20250120
  Receipt Date: 20250120
  Transmission Date: 20250408
  Serious: Yes (Hospitalization, Other)
  Sender: UNICHEM
  Company Number: CL-Unichem Pharmaceuticals (USA) Inc-UCM202501-000064

PATIENT
  Age: 75 Year
  Sex: Female

DRUGS (1)
  1. LOSARTAN [Suspect]
     Active Substance: LOSARTAN
     Indication: Hypertension

REACTIONS (8)
  - Urinary retention [Unknown]
  - Faecaloma [Unknown]
  - Quadriparesis [Unknown]
  - Hypotonia [Unknown]
  - Septic shock [Unknown]
  - Clostridium difficile infection [Unknown]
  - Myalgia [Unknown]
  - Headache [Unknown]
